FAERS Safety Report 11714797 (Version 1)
Quarter: 2015Q4

REPORT INFORMATION
  Report Type: Spontaneous
  Country: US (occurrence: None)
  Receive Date: 20151106
  Receipt Date: 20151106
  Transmission Date: 20160304
  Serious: No
  Sender: FDA-Public Use
  Company Number: None

PATIENT
  Age: 49 Year
  Sex: Male
  Weight: 92.3 kg

DRUGS (2)
  1. METOPROLOL [Suspect]
     Active Substance: METOPROLOL
     Route: 048
     Dates: start: 20030829
  2. ASPIRIN. [Suspect]
     Active Substance: ASPIRIN
     Route: 048
     Dates: start: 20060214

REACTIONS (6)
  - Blood creatinine increased [None]
  - Acidosis [None]
  - Confusional state [None]
  - Hypotension [None]
  - Blood urea increased [None]
  - Mental status changes [None]

NARRATIVE: CASE EVENT DATE: 20110802
